FAERS Safety Report 21437022 (Version 2)
Quarter: 2022Q4

REPORT INFORMATION
  Report Type: Spontaneous
  Country: CN (occurrence: CN)
  Receive Date: 20221010
  Receipt Date: 20221020
  Transmission Date: 20230113
  Serious: Yes (Hospitalization, Other)
  Sender: FDA-Public Use
  Company Number: CN-PFIZER INC-PV202200078859

PATIENT
  Age: 64 Year
  Sex: Female
  Weight: 57 kg

DRUGS (3)
  1. EPIRUBICIN [Suspect]
     Active Substance: EPIRUBICIN
     Indication: Breast cancer
     Dosage: 138 MG (90 MG/M2), D1, Q3W
     Route: 041
     Dates: start: 20220816, end: 20220816
  2. DOCETAXEL [Suspect]
     Active Substance: DOCETAXEL
     Indication: Breast cancer
     Dosage: 115 MG (75 MG/M2), D1, Q3W
     Route: 041
     Dates: start: 20220816, end: 20220816
  3. CYCLOPHOSPHAMIDE [Suspect]
     Active Substance: CYCLOPHOSPHAMIDE
     Indication: Breast cancer
     Dosage: 0.76 G (500 MG/M2), Q3W
     Route: 041
     Dates: start: 20220816, end: 20220816

REACTIONS (9)
  - Myelosuppression [Recovering/Resolving]
  - Pyrexia [Recovering/Resolving]
  - Chills [Recovering/Resolving]
  - Dyspnoea exertional [Recovering/Resolving]
  - Chest pain [Recovering/Resolving]
  - Cough [Recovering/Resolving]
  - Decreased appetite [Unknown]
  - Asthenia [Unknown]
  - Blood sodium decreased [Unknown]

NARRATIVE: CASE EVENT DATE: 20220101
